FAERS Safety Report 5669505-X (Version None)
Quarter: 2008Q1

REPORT INFORMATION
  Report Type: 
  Country: None (occurrence: None)
  Receive Date: 20080317
  Receipt Date: 20080310
  Transmission Date: 20080703
  Serious: Yes (Hospitalization)
  Sender: FDA-Public Use
  Company Number: NO-ASTRAZENECA-2008SE01360

PATIENT
  Age: 26623 Day
  Sex: Female

DRUGS (5)
  1. XYLOCAIN [Suspect]
     Indication: LOCAL ANAESTHESIA
     Dosage: IN COLUMNA, IN PREPARATION FOR PROCEDURE AT 11 HOURS
     Route: 024
     Dates: start: 20080215, end: 20080215
  2. KETORAX [Suspect]
     Indication: PAIN
     Dosage: AT 1130 AND 1 TIME DURING THE 2 HOURS PROCEDURE
     Route: 042
     Dates: start: 20080215, end: 20080215
  3. CEFALOTIN [Suspect]
     Indication: ANTIBIOTIC PROPHYLAXIS
     Dosage: AT 1130 AND AFTER PROCEDURE
     Route: 042
     Dates: start: 20080215, end: 20080215
  4. DIAZEPAM [Suspect]
     Indication: FEELING OF RELAXATION
     Dosage: BEFORE PROCEDURE, AT 1130
     Route: 042
     Dates: start: 20080215, end: 20080215
  5. STRYKER SPINEPLEX [Suspect]
     Indication: VERTEBROPLASTY
     Dosage: CEMENT FOR FIXATION

REACTIONS (4)
  - DYSPNOEA [None]
  - FLUSHING [None]
  - HYPOTENSION [None]
  - TACHYCARDIA [None]
